FAERS Safety Report 11700485 (Version 1)
Quarter: 2015Q4

REPORT INFORMATION
  Report Type: Spontaneous
  Country: GB (occurrence: GB)
  Receive Date: 20151105
  Receipt Date: 20151105
  Transmission Date: 20160304
  Serious: Yes (Life-Threatening, Hospitalization)
  Sender: FDA-Public Use
  Company Number: GB-WATSON-2015-23235

PATIENT
  Age: 15 Year
  Sex: Female

DRUGS (1)
  1. RISPERIDONE (UNKNOWN) [Suspect]
     Active Substance: RISPERIDONE
     Indication: PSYCHOTIC BEHAVIOUR
     Dosage: 250 ?G, BID
     Route: 048
     Dates: start: 20151007, end: 20151010

REACTIONS (8)
  - Hyperhidrosis [Unknown]
  - Mydriasis [Unknown]
  - Restlessness [Unknown]
  - Neuroleptic malignant syndrome [Recovered/Resolved]
  - Dyskinesia [Unknown]
  - Musculoskeletal stiffness [Unknown]
  - Pyrexia [Unknown]
  - Hypertension [Unknown]

NARRATIVE: CASE EVENT DATE: 20151010
